FAERS Safety Report 5136495-8 (Version None)
Quarter: 2006Q4

REPORT INFORMATION
  Report Type: 
  Country: None (occurrence: None)
  Receive Date: 20061020
  Receipt Date: 20061013
  Transmission Date: 20070319
  Serious: Yes (Death, Hospitalization)
  Sender: FDA-Public Use
  Company Number: TAP2006Q00245

PATIENT
  Age: 77 Year
  Sex: Male

DRUGS (11)
  1. LUPRON DEPOT-3 [Suspect]
     Indication: PROSTATE CANCER
     Dosage: 22.5 MG, 1 IN 3 M
     Dates: start: 20031110, end: 20060728
  2. CALCIUM (CALCIUM) [Concomitant]
  3. VITAMIN D [Concomitant]
  4. ESLON (MORPHINE SULFATE) [Concomitant]
  5. VASOTEC [Concomitant]
  6. LABETALON (LABETALOL) [Concomitant]
  7. ALLOPURINOL [Concomitant]
  8. RANITIDINE [Concomitant]
  9. SIMVASTATIN [Concomitant]
  10. HYDROMORPH                 (HYDROMORPHONE HYDROCHLORIDE) [Concomitant]
  11. DOCUSATE            (DOCUSATE) [Concomitant]

REACTIONS (7)
  - ARTHRALGIA [None]
  - CEREBRAL ATROPHY [None]
  - CONFUSIONAL STATE [None]
  - GASTROINTESTINAL CARCINOMA [None]
  - HEPATIC NEOPLASM MALIGNANT [None]
  - NEOPLASM MALIGNANT [None]
  - PROSTATE CANCER [None]
